FAERS Safety Report 11567958 (Version 14)
Quarter: 2018Q2

REPORT INFORMATION
  Report Type: Report from Study
  Country: US (occurrence: US)
  Receive Date: 20150929
  Receipt Date: 20180531
  Transmission Date: 20180711
  Serious: Yes (Other)
  Sender: FDA-Public Use
  Company Number: US-AMGEN-USASP2015096109

PATIENT
  Age: 40 Year
  Sex: Female

DRUGS (8)
  1. ENBREL [Suspect]
     Active Substance: ETANERCEPT
     Dosage: 50 MG, QWK
     Route: 065
  2. GABAPENTIN. [Concomitant]
     Active Substance: GABAPENTIN
     Dosage: UNK
  3. ENBREL [Suspect]
     Active Substance: ETANERCEPT
     Dosage: UNK
     Route: 065
  4. ENBREL [Suspect]
     Active Substance: ETANERCEPT
     Indication: PSORIATIC ARTHROPATHY
     Dosage: 50 MG, QWK
     Route: 065
     Dates: start: 2014
  5. ENBREL [Suspect]
     Active Substance: ETANERCEPT
     Dosage: UNK
     Route: 065
  6. ENBREL [Suspect]
     Active Substance: ETANERCEPT
     Dosage: UNK
     Route: 065
  7. ENBREL [Suspect]
     Active Substance: ETANERCEPT
     Dosage: 50 MG, QWK
     Route: 065
     Dates: start: 20150507
  8. ENBREL [Suspect]
     Active Substance: ETANERCEPT
     Dosage: UNK
     Route: 065

REACTIONS (36)
  - Nasal congestion [Unknown]
  - Abdominal pain upper [Unknown]
  - Injection site mass [Unknown]
  - Injection site erythema [Unknown]
  - Injection site extravasation [Unknown]
  - Foot deformity [Unknown]
  - Musculoskeletal disorder [Unknown]
  - Malaise [Unknown]
  - Back pain [Unknown]
  - Injection site haemorrhage [Unknown]
  - Injection site pain [Unknown]
  - Injection site induration [Unknown]
  - Headache [Unknown]
  - Injection site hypoaesthesia [Unknown]
  - Fatigue [Unknown]
  - Drug dose omission [Unknown]
  - Drug administration error [Unknown]
  - Tenoplasty [Unknown]
  - Head discomfort [Unknown]
  - Peripheral swelling [Unknown]
  - Visual impairment [Unknown]
  - Arthritis [Unknown]
  - Device issue [Unknown]
  - Injection site warmth [Unknown]
  - Foot operation [Unknown]
  - Fall [Unknown]
  - Device difficult to use [Unknown]
  - Morton^s neuralgia [Unknown]
  - Increased tendency to bruise [Unknown]
  - Seasonal allergy [Unknown]
  - Arthralgia [Unknown]
  - Pain in extremity [Unknown]
  - Condition aggravated [Unknown]
  - Injection site bruising [Unknown]
  - Inflammation [Unknown]
  - Injection site discolouration [Unknown]

NARRATIVE: CASE EVENT DATE: 2015
